FAERS Safety Report 13246311 (Version 2)
Quarter: 2017Q1

REPORT INFORMATION
  Report Type: Spontaneous
  Country: US (occurrence: US)
  Receive Date: 20170217
  Receipt Date: 20170313
  Transmission Date: 20170428
  Serious: No
  Sender: FDA-Public Use
  Company Number: US-BIOGEN-2017BI00359462

PATIENT
  Sex: Male

DRUGS (1)
  1. TECFIDERA [Suspect]
     Active Substance: DIMETHYL FUMARATE
     Indication: MULTIPLE SCLEROSIS
     Dosage: MAINTENANCE DOSE
     Route: 048
     Dates: start: 20150610

REACTIONS (6)
  - Musculoskeletal disorder [Unknown]
  - Hot flush [Unknown]
  - Underdose [Unknown]
  - Paraesthesia [Unknown]
  - Hypoacusis [Unknown]
  - Flushing [Unknown]
